FAERS Safety Report 7723418-8 (Version None)
Quarter: 2011Q3

REPORT INFORMATION
  Report Type: 
  Country: None (occurrence: None)
  Receive Date: 20110826
  Receipt Date: 20010810
  Transmission Date: 20111222
  Serious: Yes (Hospitalization)
  Sender: FDA-Public Use
  Company Number: KAD201108-000004

PATIENT
  Age: 30 Year
  Sex: Male

DRUGS (2)
  1. PEGINTERFERON ALFA-2A [Suspect]
     Indication: HEPATITIS C
     Dosage: 135 MICROGRAMS/WEEK
     Dates: start: 20090101
  2. RIBAVIRIN [Suspect]
     Indication: HEPATITIS C
     Dosage: 1200 MILLIGRAMS/DAY

REACTIONS (11)
  - PULMONARY EMBOLISM [None]
  - PULMONARY INFARCTION [None]
  - VON WILLEBRAND'S FACTOR ACTIVITY INCREASED [None]
  - BLOOD FIBRINOGEN INCREASED [None]
  - COUGH [None]
  - PYREXIA [None]
  - ASTHENIA [None]
  - ACTIVATED PROTEIN C RESISTANCE [None]
  - ENDOCARDITIS [None]
  - HYPERHOMOCYSTEINAEMIA [None]
  - GENERAL PHYSICAL HEALTH DETERIORATION [None]
